FAERS Safety Report 5632189-0 (Version None)
Quarter: 2008Q1

REPORT INFORMATION
  Report Type: 
  Country: None (occurrence: None)
  Receive Date: 20080220
  Receipt Date: 20080206
  Transmission Date: 20080703
  Serious: Yes (Hospitalization, Other)
  Sender: FDA-Public Use
  Company Number: GB-RANBAXY-2008RR-12486

PATIENT

DRUGS (6)
  1. DICLOFENAC SODIQUE O.P.I.H.  ENFANTS 25MG SUPPOSITOIRE [Suspect]
     Indication: ANALGESIA
     Dosage: 0.83 MG/KG, UNK
     Route: 054
     Dates: start: 20041202, end: 20041202
  2. IBUPROFEN [Suspect]
     Indication: ABDOMINAL PAIN
     Dosage: 150 MG, UNK
     Route: 048
     Dates: start: 20041204, end: 20041204
  3. CEFTRIAXONE [Concomitant]
     Indication: URINARY TRACT INFECTION
     Dosage: 2 G, QD
     Route: 042
     Dates: start: 20041203, end: 20041203
  4. ONDANSETRON SOLUTION FOR INJECTION [Concomitant]
     Indication: VOMITING
     Dosage: 3 MG, UNK
     Route: 042
     Dates: start: 20041203, end: 20041203
  5. ACETAMINOPHEN [Concomitant]
     Indication: PYREXIA
     Dosage: 450 MG, UNK
     Route: 048
     Dates: start: 20041202, end: 20041202
  6. ACETAMINOPHEN [Concomitant]
     Indication: PYREXIA
     Dosage: 1 G, UNK
     Route: 054
     Dates: start: 20041202, end: 20041204

REACTIONS (6)
  - ABDOMINAL PAIN [None]
  - ANURIA [None]
  - BLOOD CREATININE INCREASED [None]
  - HYPERTENSION [None]
  - RENAL FAILURE ACUTE [None]
  - RENAL TUBULAR NECROSIS [None]
